FAERS Safety Report 23078831 (Version 1)
Quarter: 2023Q4

REPORT INFORMATION
  Report Type: Spontaneous
  Country: US (occurrence: US)
  Receive Date: 20231018
  Receipt Date: 20231018
  Transmission Date: 20240109
  Serious: Yes (Hospitalization, Other)
  Sender: FDA-Public Use
  Company Number: US-ALEMBIC PHARMACUETICALS LIMITED-2023SCAL000868

PATIENT

DRUGS (1)
  1. TESTOSTERONE [Suspect]
     Active Substance: TESTOSTERONE
     Indication: Muscle building therapy
     Dosage: UNK
     Route: 065

REACTIONS (8)
  - Coronary artery dissection [Unknown]
  - Chest pain [Recovered/Resolved]
  - Troponin increased [Unknown]
  - Coronary artery thrombosis [Unknown]
  - Thrombocytosis [Unknown]
  - Hypertension [Unknown]
  - Acute myocardial infarction [Unknown]
  - Electrocardiogram T wave inversion [Unknown]
